FAERS Safety Report 7458361-5 (Version None)
Quarter: 2011Q2

REPORT INFORMATION
  Report Type: 
  Country: None (occurrence: None)
  Receive Date: 20110504
  Receipt Date: 20101115
  Transmission Date: 20111010
  Serious: Yes (Other)
  Sender: FDA-Public Use
  Company Number: A0893381A

PATIENT
  Sex: Male
  Weight: 90.5 kg

DRUGS (10)
  1. CLOPIDOGREL [Concomitant]
  2. LORAZEPAM [Concomitant]
  3. SIMVASTATIN [Concomitant]
  4. AVANDIA [Suspect]
     Indication: DIABETES MELLITUS
     Route: 048
     Dates: start: 20030101, end: 20090101
  5. GLIPIZIDE [Concomitant]
  6. NAPROXEN [Concomitant]
  7. LISINOPRIL [Concomitant]
  8. METFORMIN [Concomitant]
  9. METOPROLOL SUCCINATE [Concomitant]
  10. SERTRALINE [Concomitant]

REACTIONS (1)
  - CORONARY ARTERY OCCLUSION [None]
